FAERS Safety Report 8425317-5 (Version None)
Quarter: 2012Q2

REPORT INFORMATION
  Report Type: 
  Country: None (occurrence: None)
  Receive Date: 20120605
  Receipt Date: 20120605
  Transmission Date: 20120825
  Serious: Yes (Hospitalization)
  Sender: FDA-Public Use
  Company Number: None

PATIENT
  Sex: Female

DRUGS (1)
  1. HEPARIN SODIUM [Suspect]
     Indication: PROPHYLAXIS
     Dosage: 5000 UNITS EVERY 8 HOURS SQ
     Dates: start: 20120524, end: 20120527

REACTIONS (3)
  - HAEMOTHORAX [None]
  - HAEMATOMA [None]
  - GASTROINTESTINAL HAEMORRHAGE [None]
